FAERS Safety Report 4903456-0 (Version None)
Quarter: 2006Q1

REPORT INFORMATION
  Report Type: 
  Country: None (occurrence: None)
  Receive Date: 20060206
  Receipt Date: 20060206
  Transmission Date: 20060701
  Serious: Yes (Hospitalization, Other)
  Sender: FDA-Public Use
  Company Number: None

PATIENT
  Age: 43 Year
  Sex: Female
  Weight: 58.9676 kg

DRUGS (1)
  1. MAGNEVIST [Suspect]
     Indication: NUCLEAR MAGNETIC RESONANCE IMAGING
     Dates: start: 20060127, end: 20060127

REACTIONS (11)
  - ADVERSE DRUG REACTION [None]
  - BLEPHAROSPASM [None]
  - BLOOD TEST ABNORMAL [None]
  - CONVULSION [None]
  - ELECTROCARDIOGRAM ABNORMAL [None]
  - FACIAL PALSY [None]
  - FALL [None]
  - FEELING DRUNK [None]
  - PANIC ATTACK [None]
  - PARALYSIS [None]
  - TREMOR [None]
